FAERS Safety Report 5921044-4 (Version None)
Quarter: 2008Q4

REPORT INFORMATION
  Report Type: 
  Country: None (occurrence: None)
  Receive Date: 20081016
  Receipt Date: 20081006
  Transmission Date: 20090506
  Serious: Yes (Other)
  Sender: FDA-Public Use
  Company Number: US-PFIZER INC-2008079731

PATIENT
  Age: 52 Year
  Sex: Female

DRUGS (4)
  1. SERTRALINE [Suspect]
     Indication: DEPRESSION
     Dosage: DAILY DOSE:200MG
  2. LITHIUM [Suspect]
     Indication: DEPRESSION
     Dosage: DAILY DOSE:900MG
  3. BUPROPION HCL [Suspect]
     Indication: DEPRESSION
     Dosage: DAILY DOSE:300MG
  4. ARIPIPRAZOLE [Suspect]
     Indication: DEPRESSION

REACTIONS (2)
  - DEPRESSION [None]
  - DRUG INEFFECTIVE [None]
